FAERS Safety Report 11058942 (Version 1)
Quarter: 2015Q2

REPORT INFORMATION
  Report Type: Spontaneous
  Country: US (occurrence: None)
  Receive Date: 20150420
  Receipt Date: 20150420
  Transmission Date: 20150821
  Serious: No
  Sender: FDA-Public Use
  Company Number: AEGR001128

PATIENT
  Age: 65 Year
  Sex: Female
  Weight: 65.3 kg

DRUGS (7)
  1. LODINE (ETODOLAC) [Concomitant]
  2. OMEPRAZOLE. [Concomitant]
     Active Substance: OMEPRAZOLE
  3. FIBER (POLYCARBOPHIL CALCIUM) [Concomitant]
     Active Substance: CALCIUM POLYCARBOPHIL
  4. VITAMIN D (COLECALCIFEROL) [Concomitant]
  5. PENICILLIN NOS [Suspect]
     Active Substance: PENICILLIN
     Indication: STREPTOCOCCAL INFECTION
     Dates: start: 20150117
  6. ASPIRIN (ACETYLSALICYLIC ACID) [Concomitant]
     Active Substance: ASPIRIN
  7. JUXTAPID [Suspect]
     Active Substance: LOMITAPIDE MESYLATE
     Indication: TYPE IIA HYPERLIPIDAEMIA
     Route: 048
     Dates: start: 20150116

REACTIONS (6)
  - Streptococcal infection [None]
  - Decreased appetite [None]
  - Gastrooesophageal reflux disease [None]
  - Oesophageal pain [None]
  - Nausea [None]
  - Diarrhoea [None]

NARRATIVE: CASE EVENT DATE: 20150116
